FAERS Safety Report 6103831-5 (Version None)
Quarter: 2009Q1

REPORT INFORMATION
  Report Type: 
  Country: None (occurrence: None)
  Receive Date: 20090227
  Receipt Date: 20081219
  Transmission Date: 20090719
  Serious: Yes (Other)
  Sender: FDA-Public Use
  Company Number: 604663

PATIENT
  Sex: 0

DRUGS (5)
  1. ISOTRETINOIN [Suspect]
     Indication: ACNE
  2. CLARAVIS [Suspect]
     Indication: ACNE
  3. SOTRET [Suspect]
     Indication: ACNE
  4. EFFEXOR [Concomitant]
  5. KLONOPIN [Concomitant]

REACTIONS (2)
  - NO ADVERSE EVENT [None]
  - PREGNANCY [None]
